FAERS Safety Report 8263833 (Version 2)
Quarter: 2014Q3

REPORT INFORMATION
  Report Type: Spontaneous
  Country: US (occurrence: US)
  Receive Date: 20111128
  Receipt Date: 20140708
  Transmission Date: 20150326
  Serious: Yes (Hospitalization)
  Sender: FDA-Public Use
  Company Number: PHHY2011US101905

PATIENT
  Age: 14 Month
  Sex: Male

DRUGS (1)
  1. DONEPEZIL [Suspect]
     Active Substance: DONEPEZIL
     Dosage: 10 MG, ONCE/SINGLE
     Route: 048

REACTIONS (17)
  - Bradycardia [Recovered/Resolved]
  - Rash macular [Recovered/Resolved]
  - Vomiting [Recovered/Resolved]
  - Drooling [Recovered/Resolved]
  - Irritability [Recovered/Resolved]
  - Feeding disorder [Recovered/Resolved]
  - Fall [Recovered/Resolved]
  - Agitation [Recovered/Resolved]
  - Toxicity to various agents [Recovered/Resolved]
  - Somnolence [Recovered/Resolved]
  - Accidental exposure to product [Recovered/Resolved]
  - Mental status changes [Recovered/Resolved]
  - Nodal rhythm [Recovered/Resolved]
  - Gait disturbance [Recovered/Resolved]
  - Blood pressure decreased [Recovered/Resolved]
  - Crying [Recovered/Resolved]
  - Diarrhoea [Recovered/Resolved]
